FAERS Safety Report 12604929 (Version 2)
Quarter: 2016Q3

REPORT INFORMATION
  Report Type: Spontaneous
  Country: US (occurrence: US)
  Receive Date: 20160728
  Receipt Date: 20160819
  Transmission Date: 20161109
  Serious: Yes (Other)
  Sender: FDA-Public Use
  Company Number: US-JAZZ-2016-US-012725

PATIENT
  Age: 35 Year
  Sex: Female

DRUGS (27)
  1. BENADRYL ALLERGY [Concomitant]
     Active Substance: DIPHENHYDRAMINE HYDROCHLORIDE
  2. LISINOPRIL. [Concomitant]
     Active Substance: LISINOPRIL
  3. NUVIGIL [Concomitant]
     Active Substance: ARMODAFINIL
  4. CHERATUSSIN AC [Concomitant]
     Active Substance: CODEINE PHOSPHATE\GUAIFENESIN
  5. CORICIDIN HBP CHEST CONGESTION + COUGH [Concomitant]
  6. SONATA [Concomitant]
     Active Substance: ZALEPLON
  7. IRON [Suspect]
     Active Substance: IRON
     Indication: PRODUCT USED FOR UNKNOWN INDICATION
  8. BENTYL [Concomitant]
     Active Substance: DICYCLOMINE HYDROCHLORIDE
  9. FLONASE [Concomitant]
     Active Substance: FLUTICASONE PROPIONATE
  10. VITAMIN D [Concomitant]
     Active Substance: CHOLECALCIFEROL
  11. REQUIP [Concomitant]
     Active Substance: ROPINIROLE HYDROCHLORIDE
  12. LORTAB [Suspect]
     Active Substance: ACETAMINOPHEN\HYDROCODONE BITARTRATE
     Indication: PRODUCT USED FOR UNKNOWN INDICATION
     Dosage: UNK
     Dates: start: 20160614
  13. ADDERALL [Concomitant]
     Active Substance: AMPHETAMINE ASPARTATE\AMPHETAMINE SULFATE\DEXTROAMPHETAMINE SACCHARATE\DEXTROAMPHETAMINE SULFATE
  14. XYREM [Suspect]
     Active Substance: SODIUM OXYBATE
     Indication: NARCOLEPSY
     Dosage: 2.25 G, BID
     Route: 048
     Dates: start: 201606
  15. AMOXICILLIN. [Concomitant]
     Active Substance: AMOXICILLIN
  16. EPIPEN [Concomitant]
     Active Substance: EPINEPHRINE
  17. KETOCONAZOLE. [Concomitant]
     Active Substance: KETOCONAZOLE
  18. CUTIVATE [Concomitant]
     Active Substance: FLUTICASONE PROPIONATE
  19. DEPO-PROVERA [Concomitant]
     Active Substance: MEDROXYPROGESTERONE ACETATE
  20. FERROUS SULFATE. [Concomitant]
     Active Substance: FERROUS SULFATE
  21. NEUPRO [Concomitant]
     Active Substance: ROTIGOTINE
  22. XYREM [Suspect]
     Active Substance: SODIUM OXYBATE
     Indication: CATAPLEXY
  23. ROTIGOTINE [Suspect]
     Active Substance: ROTIGOTINE
     Indication: PRODUCT USED FOR UNKNOWN INDICATION
  24. LORATADINE. [Concomitant]
     Active Substance: LORATADINE
  25. MAXALT [Concomitant]
     Active Substance: RIZATRIPTAN BENZOATE
  26. NIACIN. [Concomitant]
     Active Substance: NIACIN
  27. VITAMIN C [Concomitant]
     Active Substance: ASCORBIC ACID

REACTIONS (11)
  - Arthropathy [Not Recovered/Not Resolved]
  - Acne [Not Recovered/Not Resolved]
  - Exostosis [Unknown]
  - Eating disorder [Unknown]
  - Therapeutic response unexpected [Unknown]
  - Surgery [Unknown]
  - Rash [Not Recovered/Not Resolved]
  - Constipation [Unknown]
  - Malaise [Not Recovered/Not Resolved]
  - Temperature intolerance [Unknown]
  - Pre-existing condition improved [Unknown]

NARRATIVE: CASE EVENT DATE: 2016
